FAERS Safety Report 4781592-X (Version None)
Quarter: 2005Q3

REPORT INFORMATION
  Report Type: 
  Country: None (occurrence: None)
  Receive Date: 20050927
  Receipt Date: 20050914
  Transmission Date: 20060218
  Serious: Yes (Other)
  Sender: FDA-Public Use
  Company Number: HQWYE966611APR05

PATIENT
  Age: 57 Year
  Sex: Female

DRUGS (7)
  1. TAZOCIN (PIPERACILLIN/TAZOBACTAM, INJECTION) [Suspect]
     Indication: PNEUMONIA
     Dosage: 2.5 G 3X PER 1 DAY, INTRAVENOUS DRIP
     Route: 041
     Dates: start: 20041209, end: 20041219
  2. TAZOCIN (PIPERACILLIN/TAZOBACTAM, INJECTION) [Suspect]
     Indication: SEPSIS
     Dosage: 2.5 G 3X PER 1 DAY, INTRAVENOUS DRIP
     Route: 041
     Dates: start: 20041209, end: 20041219
  3. FUNGIZONE [Suspect]
     Indication: PNEUMONIA
     Dosage: 20 MG DAILY, INTRAVENOUS DRIP
     Route: 041
     Dates: start: 20041208, end: 20050112
  4. FUNGIZONE [Suspect]
     Indication: SEPSIS
     Dosage: 20 MG DAILY, INTRAVENOUS DRIP
     Route: 041
     Dates: start: 20041208, end: 20050112
  5. VANCOMYCIN [Suspect]
     Indication: PNEUMONIA
     Dosage: 750 MG DAILY; INTRAVENOUS DRIP
     Route: 041
     Dates: start: 20041209, end: 20050104
  6. VANCOMYCIN [Suspect]
     Indication: SEPSIS
     Dosage: 750 MG DAILY; INTRAVENOUS DRIP
     Route: 041
     Dates: start: 20041209, end: 20050104
  7. CARBENIN (BETAMIPRON/PANIPENEM) [Concomitant]

REACTIONS (9)
  - ACUTE RESPIRATORY DISTRESS SYNDROME [None]
  - ALANINE AMINOTRANSFERASE INCREASED [None]
  - ASPARTATE AMINOTRANSFERASE INCREASED [None]
  - BLOOD CREATININE INCREASED [None]
  - BLOOD UREA INCREASED [None]
  - GASTROINTESTINAL HAEMORRHAGE [None]
  - LIVER DISORDER [None]
  - RENAL DISORDER [None]
  - WHITE BLOOD CELL COUNT DECREASED [None]
